FAERS Safety Report 8460541-7 (Version None)
Quarter: 2012Q2

REPORT INFORMATION
  Report Type: 
  Country: None (occurrence: None)
  Receive Date: 20120622
  Receipt Date: 20120621
  Transmission Date: 20120825
  Serious: Yes (Life-Threatening)
  Sender: FDA-Public Use
  Company Number: NL-AMGEN-NLDCT2012038669

PATIENT
  Age: 78 Year
  Sex: Male
  Weight: 82 kg

DRUGS (9)
  1. OMEPRAZOLE [Concomitant]
     Dosage: 40 MG, UNK
     Route: 048
     Dates: start: 20120501
  2. RITUXIMAB [Concomitant]
     Indication: MALIGNANT LYMPHOID NEOPLASM
     Dosage: UNK
     Route: 042
     Dates: start: 20120425
  3. PEGFILGRASTIM [Suspect]
     Indication: MALIGNANT LYMPHOID NEOPLASM
     Dosage: 6 MG, UNK
     Route: 058
     Dates: start: 20120426
  4. DOXORUBICIN HCL [Concomitant]
     Indication: MALIGNANT LYMPHOID NEOPLASM
     Dosage: UNK
     Route: 042
     Dates: start: 20120425
  5. VINCRISTINE [Concomitant]
     Indication: MALIGNANT LYMPHOID NEOPLASM
     Dosage: UNK
     Route: 042
     Dates: start: 20120425
  6. ENALAPRIL MALEATE [Concomitant]
     Dosage: 40 MG, UNK
     Route: 048
     Dates: start: 20120501
  7. HYDROCHLOROTHIAZIDE [Concomitant]
     Dosage: 12.5 MG, UNK
     Route: 048
     Dates: start: 20120501
  8. CYCLOPHOSPHAMIDE [Concomitant]
     Indication: MALIGNANT LYMPHOID NEOPLASM
     Dosage: UNK
     Route: 042
     Dates: start: 20120425
  9. PREDNISONE TAB [Concomitant]
     Indication: MALIGNANT LYMPHOID NEOPLASM
     Dosage: UNK
     Route: 048
     Dates: start: 20120425

REACTIONS (1)
  - PULMONARY EMBOLISM [None]
